FAERS Safety Report 20839294 (Version 1)
Quarter: 2022Q2

REPORT INFORMATION
  Report Type: Spontaneous
  Country: FR (occurrence: FR)
  Receive Date: 20220517
  Receipt Date: 20220517
  Transmission Date: 20220721
  Serious: Yes (Other)
  Sender: FDA-Public Use
  Company Number: FR-MEITHEAL-2022MPLIT00069

PATIENT
  Age: 71 Year
  Sex: Male

DRUGS (3)
  1. GEMCITABINE [Suspect]
     Active Substance: GEMCITABINE
     Indication: Adenocarcinoma pancreas
     Route: 065
     Dates: start: 201906, end: 202002
  2. PACLITAXEL [Suspect]
     Active Substance: PACLITAXEL
     Indication: Adenocarcinoma pancreas
     Route: 065
     Dates: start: 201906, end: 202001
  3. erythrocytes-encapsulated L-asparaginase [Concomitant]
     Indication: Adenocarcinoma pancreas
     Route: 065
     Dates: start: 201906

REACTIONS (2)
  - Thrombotic microangiopathy [Recovered/Resolved]
  - Drug interaction [Unknown]

NARRATIVE: CASE EVENT DATE: 20200201
